FAERS Safety Report 8558027-4 (Version None)
Quarter: 2012Q3

REPORT INFORMATION
  Report Type: 
  Country: None (occurrence: None)
  Receive Date: 20120801
  Receipt Date: 20120725
  Transmission Date: 20120928
  Serious: Yes (Other)
  Sender: FDA-Public Use
  Company Number: US-PFIZER INC-2012181466

PATIENT
  Sex: Male

DRUGS (1)
  1. REVATIO [Suspect]
     Indication: PULMONARY HYPERTENSION
     Dosage: 20 MG, 3X/DAY
     Route: 048
     Dates: start: 20110224, end: 20120511

REACTIONS (15)
  - CARDIAC FAILURE CONGESTIVE [None]
  - RHABDOMYOLYSIS [None]
  - ANAEMIA [None]
  - VITAMIN D DEFICIENCY [None]
  - HYPERPARATHYROIDISM [None]
  - THROMBOCYTOPENIA [None]
  - MACROCYTOSIS [None]
  - PEPTIC ULCER [None]
  - RENAL FAILURE CHRONIC [None]
  - CHRONIC OBSTRUCTIVE PULMONARY DISEASE [None]
  - HYPERURICAEMIA [None]
  - SYNCOPE [None]
  - DRUG INEFFECTIVE [None]
  - CATARACT [None]
  - GOUT [None]
